FAERS Safety Report 7555659-7 (Version None)
Quarter: 2011Q2

REPORT INFORMATION
  Report Type: 
  Country: None (occurrence: None)
  Receive Date: 20110617
  Receipt Date: 20080508
  Transmission Date: 20111010
  Serious: Yes (Other)
  Sender: FDA-Public Use
  Company Number: PHHY2008US07582

PATIENT
  Age: 60 Year
  Sex: Female

DRUGS (1)
  1. EXJADE [Suspect]
     Indication: PORPHYRIN METABOLISM DISORDER
     Dosage: 1500 MG, QD
     Route: 048
     Dates: start: 20080221, end: 20080508

REACTIONS (2)
  - HEART RATE INCREASED [None]
  - BLOOD PRESSURE INCREASED [None]
